FAERS Safety Report 17201954 (Version 1)
Quarter: 2019Q4

REPORT INFORMATION
  Report Type: Spontaneous
  Country: US (occurrence: US)
  Receive Date: 20191226
  Receipt Date: 20191226
  Transmission Date: 20200122
  Serious: No
  Sender: FDA-Public Use
  Company Number: US-PFIZER INC-2019551638

PATIENT
  Age: 27 Year
  Sex: Female

DRUGS (2)
  1. HYDREA [Suspect]
     Active Substance: HYDROXYUREA
     Indication: LANGERHANS^ CELL HISTIOCYTOSIS
     Dosage: UNK
  2. CYTARABINE. [Suspect]
     Active Substance: CYTARABINE
     Indication: LANGERHANS^ CELL HISTIOCYTOSIS
     Dosage: UNK

REACTIONS (3)
  - Product use in unapproved indication [Unknown]
  - Neoplasm progression [Unknown]
  - Off label use [Unknown]
